FAERS Safety Report 7509181-4 (Version None)
Quarter: 2011Q2

REPORT INFORMATION
  Report Type: 
  Country: None (occurrence: None)
  Receive Date: 20110527
  Receipt Date: 20101228
  Transmission Date: 20111010
  Serious: Yes (Other)
  Sender: FDA-Public Use
  Company Number: US-MYLANLABS-2010S1023768

PATIENT
  Age: 50 Year
  Sex: Male
  Weight: 74.84 kg

DRUGS (9)
  1. BENADRYL [Concomitant]
     Indication: SINUS DISORDER
  2. GABAPENTIN [Suspect]
     Indication: TUMOUR PAIN
     Route: 048
     Dates: start: 20030701, end: 20090101
  3. VALIUM [Concomitant]
     Indication: MUSCLE DISORDER
  4. OMEPRAZOLE [Concomitant]
     Indication: ABDOMINAL DISCOMFORT
  5. CARBAMAZEPINE [Suspect]
     Indication: TUMOUR PAIN
     Dates: start: 20030101
  6. LISINOPRIL [Concomitant]
     Indication: BLOOD PRESSURE INCREASED
  7. OXYCODONE HYDROCHLORIDE [Suspect]
     Indication: TUMOUR PAIN
     Dates: start: 20030101
  8. TOPIRAMATE [Suspect]
     Indication: TUMOUR PAIN
     Dates: start: 20030101
  9. AMITRIPTYLINE HCL [Suspect]
     Indication: TUMOUR PAIN
     Dates: start: 20030101

REACTIONS (2)
  - SUICIDAL IDEATION [None]
  - DRUG INEFFECTIVE [None]
